FAERS Safety Report 18753370 (Version 1)
Quarter: 2021Q1

REPORT INFORMATION
  Report Type: Spontaneous
  Country: US (occurrence: US)
  Receive Date: 20210118
  Receipt Date: 20210118
  Transmission Date: 20210419
  Serious: No
  Sender: FDA-Public Use
  Company Number: US-TAKEDA-2021TUS001839

PATIENT
  Sex: Female
  Weight: 49 kg

DRUGS (7)
  1. IRON [Concomitant]
     Active Substance: IRON
     Dosage: UNK UNK, BID
  2. PREDNISONE. [Concomitant]
     Active Substance: PREDNISONE
  3. LIALDA [Suspect]
     Active Substance: MESALAMINE
     Indication: COLITIS
  4. CALCIUM [Concomitant]
     Active Substance: CALCIUM
  5. LIALDA [Suspect]
     Active Substance: MESALAMINE
     Indication: COLITIS ULCERATIVE
     Dosage: 1.2 GRAM, BID
     Route: 065
     Dates: start: 20201101
  6. CENTRUM FOR WOMEN [Concomitant]
     Active Substance: VITAMINS
  7. LIPITOR [Concomitant]
     Active Substance: ATORVASTATIN CALCIUM

REACTIONS (4)
  - Back pain [Unknown]
  - Oedema peripheral [Unknown]
  - Faeces soft [Unknown]
  - Drug ineffective [Unknown]
